FAERS Safety Report 5570898-2 (Version None)
Quarter: 2007Q4

REPORT INFORMATION
  Report Type: 
  Country: None (occurrence: None)
  Receive Date: 20071221
  Receipt Date: 20071218
  Transmission Date: 20080405
  Serious: Yes (Death, Other)
  Sender: FDA-Public Use
  Company Number: JP-WYE-H01813007

PATIENT
  Age: 31 Year
  Sex: Female
  Weight: 53 kg

DRUGS (9)
  1. MYLOTARG [Suspect]
     Indication: ACUTE MYELOID LEUKAEMIA RECURRENT
     Route: 042
     Dates: start: 20061219, end: 20061219
  2. MYLOTARG [Suspect]
     Route: 042
     Dates: start: 20070105, end: 20070105
  3. LOXONIN [Concomitant]
     Dosage: 60 MG (FREQUENCY NOT PROVIDED)
     Route: 048
     Dates: end: 20070204
  4. OXYCONTIN [Concomitant]
     Route: 048
     Dates: start: 20061120, end: 20070123
  5. RABEPRAZOLE SODIUM [Concomitant]
     Indication: PROPHYLAXIS
     Route: 048
     Dates: start: 20060920, end: 20070117
  6. VORICONAZOLE [Concomitant]
     Indication: PROPHYLAXIS
  7. MAGNESIUM OXIDE [Concomitant]
     Indication: PROPHYLAXIS
     Route: 048
     Dates: start: 20061108, end: 20070110
  8. BAKTAR [Concomitant]
     Indication: PROPHYLAXIS
     Dosage: NOT PROVIDED
     Route: 048
     Dates: start: 20060124, end: 20070204
  9. ACYCLOVIR [Concomitant]
     Indication: PROPHYLAXIS
     Route: 048
     Dates: start: 20060804, end: 20070112

REACTIONS (3)
  - BLOOD PRESSURE DECREASED [None]
  - PLATELET COUNT DECREASED [None]
  - SEPTIC SHOCK [None]
